FAERS Safety Report 12903149 (Version 3)
Quarter: 2019Q4

REPORT INFORMATION
  Report Type: Spontaneous
  Country: US (occurrence: US)
  Receive Date: 20161102
  Receipt Date: 20191205
  Transmission Date: 20200122
  Serious: Yes (Other)
  Sender: FDA-Public Use
  Company Number: US-PFIZER INC-2016504197

PATIENT
  Age: 66 Year
  Sex: Male

DRUGS (1)
  1. PARICALCITOL. [Suspect]
     Active Substance: PARICALCITOL
     Dosage: UNK

REACTIONS (2)
  - Drug hypersensitivity [Unknown]
  - Pharyngeal swelling [Unknown]
